FAERS Safety Report 16352134 (Version 1)
Quarter: 2019Q2

REPORT INFORMATION
  Report Type: Spontaneous
  Country: US (occurrence: US)
  Receive Date: 20190418
  Receipt Date: 20190418
  Transmission Date: 20190711
  Serious: No
  Sender: FDA-Public Use
  Company Number: None

PATIENT
  Age: 61 Year
  Sex: Male

DRUGS (2)
  1. IMATINIB 400 MG TAB (X30) [Suspect]
     Active Substance: IMATINIB MESYLATE
     Dates: start: 20140911
  2. LOPRESSOR [Concomitant]
     Active Substance: METOPROLOL TARTRATE

REACTIONS (2)
  - Therapy cessation [None]
  - Inability to afford medication [None]

NARRATIVE: CASE EVENT DATE: 20190418
